FAERS Safety Report 7069908-5 (Version None)
Quarter: 2010Q4

REPORT INFORMATION
  Report Type: 
  Country: None (occurrence: None)
  Receive Date: 20101028
  Receipt Date: 20100827
  Transmission Date: 20110411
  Serious: Yes (Other)
  Sender: FDA-Public Use
  Company Number: US-WYE-H16290410

PATIENT
  Age: 56 Year
  Sex: Female
  Weight: 62.2 kg

DRUGS (4)
  1. ADVIL [Suspect]
     Indication: ANALGESIC THERAPY
     Route: 048
     Dates: start: 20080101, end: 20100606
  2. BISOPROLOL [Concomitant]
     Dosage: UNKNOWN
     Route: 048
  3. XANAX [Concomitant]
     Dosage: UNKNOWN
     Route: 048
  4. LOTREL [Concomitant]
     Dosage: UNKNOWN
     Route: 048

REACTIONS (4)
  - DEAFNESS [None]
  - DRUG EFFECT DECREASED [None]
  - OVERDOSE [None]
  - TINNITUS [None]
